FAERS Safety Report 18381249 (Version 1)
Quarter: 2020Q4

REPORT INFORMATION
  Report Type: Spontaneous
  Country: US (occurrence: US)
  Receive Date: 20201013
  Receipt Date: 20201013
  Transmission Date: 20210114
  Serious: Yes (Hospitalization)
  Sender: FDA-Public Use
  Company Number: None

PATIENT
  Age: 66 Year
  Sex: Female
  Weight: 116.05 kg

DRUGS (3)
  1. CYMBALTA [Concomitant]
     Active Substance: DULOXETINE HYDROCHLORIDE
     Dates: start: 20180710
  2. CARBIDOPA/LEVODOPA [Concomitant]
     Active Substance: CARBIDOPA\LEVODOPA
     Dates: start: 20150314
  3. SYNERCID [Suspect]
     Active Substance: DALFOPRISTIN\QUINUPRISTIN
     Indication: ENTEROCOCCAL INFECTION
     Route: 041
     Dates: start: 20201007, end: 20201009

REACTIONS (7)
  - Skin discolouration [None]
  - Loss of consciousness [None]
  - Oxygen saturation decreased [None]
  - Headache [None]
  - Throat tightness [None]
  - Chest discomfort [None]
  - Swollen tongue [None]

NARRATIVE: CASE EVENT DATE: 20201009
